FAERS Safety Report 5391535-6 (Version None)
Quarter: 2007Q3

REPORT INFORMATION
  Report Type: 
  Country: None (occurrence: None)
  Receive Date: 20070719
  Receipt Date: 20070309
  Transmission Date: 20080115
  Serious: Yes (Hospitalization, Other)
  Sender: FDA-Public Use
  Company Number: FRWYE077231MAR03

PATIENT
  Sex: Male
  Weight: 66 kg

DRUGS (6)
  1. RAPAMUNE [Suspect]
     Indication: PROPHYLAXIS AGAINST TRANSPLANT REJECTION
     Dosage: UNKNOWN
     Route: 048
     Dates: start: 20030211, end: 20030216
  2. RAPAMUNE [Suspect]
     Dosage: 12 MG DAILY
     Route: 048
     Dates: start: 20030217
  3. DIURETICS [Suspect]
  4. THYMOGLOBULIN [Concomitant]
     Indication: PROPHYLAXIS AGAINST TRANSPLANT REJECTION
     Dosage: 100 MG DAILY
     Route: 042
     Dates: start: 20030210, end: 20030216
  5. CELLCEPT [Suspect]
     Indication: PROPHYLAXIS AGAINST TRANSPLANT REJECTION
     Dosage: 1.5 G DAILY ON 17-FEB-2003
     Route: 048
     Dates: start: 20030210, end: 20030101
  6. SOLU-MEDROL [Concomitant]
     Indication: PROPHYLAXIS AGAINST TRANSPLANT REJECTION
     Dosage: 12.5 MG DAILY ON 17-FEB-2003
     Route: 048
     Dates: start: 20030210

REACTIONS (7)
  - CACHEXIA [None]
  - CYTOMEGALOVIRUS INFECTION [None]
  - DEHYDRATION [None]
  - DIARRHOEA [None]
  - GRAFT DYSFUNCTION [None]
  - RENAL TUBULAR NECROSIS [None]
  - URINARY TRACT DISORDER [None]
